FAERS Safety Report 6133525-1 (Version None)
Quarter: 2009Q1

REPORT INFORMATION
  Report Type: 
  Country: None (occurrence: None)
  Receive Date: 20090326
  Receipt Date: 20090317
  Transmission Date: 20090719
  Serious: Yes (Hospitalization)
  Sender: FDA-Public Use
  Company Number: BE-AVENTIS-200911412GDDC

PATIENT
  Sex: Female
  Weight: 61 kg

DRUGS (3)
  1. DOCETAXEL [Suspect]
     Indication: NON-SMALL CELL LUNG CANCER
     Route: 042
     Dates: start: 20070312, end: 20070312
  2. CISPLATIN [Suspect]
     Indication: NON-SMALL CELL LUNG CANCER
     Route: 042
     Dates: start: 20070312, end: 20070312
  3. LOGIMAT [Concomitant]
     Dosage: DOSE: 95/10

REACTIONS (2)
  - NEUTROPENIC COLITIS [None]
  - PNEUMOPERITONEUM [None]
